FAERS Safety Report 20919401 (Version 1)
Quarter: 2022Q2

REPORT INFORMATION
  Report Type: Spontaneous
  Country: US (occurrence: None)
  Receive Date: 20220603
  Receipt Date: 20220603
  Transmission Date: 20220721
  Serious: Yes (Death)
  Sender: FDA-Public Use
  Company Number: None

PATIENT
  Age: 91 Year
  Sex: Male

DRUGS (15)
  1. RAYALDEE [Suspect]
     Active Substance: CALCIFEDIOL
     Indication: Product used for unknown indication
     Dosage: FREQUENCY : DAILY;?
     Route: 048
     Dates: start: 20211126, end: 20220525
  2. POTASSIUM CHLORIDE [Concomitant]
     Active Substance: POTASSIUM CHLORIDE
  3. ASPIRIN 81MG IC LOW DOSE TABLETS [Concomitant]
  4. HYDRASAZINE 25MG TABLETS (ORANGE) [Concomitant]
  5. BUMETANIDE 1 MG TABLETS [Concomitant]
  6. FUROSEMIDE 40MG TABLETS [Concomitant]
  7. ALPRAZOLAM [Concomitant]
     Active Substance: ALPRAZOLAM
  8. ATORVASTATIN [Concomitant]
     Active Substance: ATORVASTATIN
  9. CARVEDILOL 3.125MG TABLETS [Concomitant]
  10. FERROUS SULFATE 324MG EC TABS RED [Concomitant]
  11. ONDANSETRON 4MG TABLETS [Concomitant]
  12. TAMSULOSIN [Concomitant]
     Active Substance: TAMSULOSIN
  13. TRAMADOL HYDROCHLORIDE [Concomitant]
     Active Substance: TRAMADOL HYDROCHLORIDE
  14. TYLENOL 500MG E/S (ACETAMINOPHE) [Concomitant]
  15. NEXIUM 40MG CAPSULES [Concomitant]

REACTIONS (1)
  - Death [None]

NARRATIVE: CASE EVENT DATE: 20220525
